FAERS Safety Report 10575301 (Version 2)
Quarter: 2015Q1

REPORT INFORMATION
  Report Type: Spontaneous
  Country: JP (occurrence: None)
  Receive Date: 20141107
  Receipt Date: 20150122
  Transmission Date: 20150720
  Serious: Yes (Other)
  Sender: FDA-Public Use
  Company Number: JP-20140340

PATIENT
  Age: 66 Year
  Sex: Male

DRUGS (2)
  1. LIPIODOL ULTRA FLUID [Suspect]
     Active Substance: ETHIODIZED OIL
     Indication: BALLOON-OCCLUDED RETROGRADE TRANSVENOUS OBLITERATION
     Route: 013
     Dates: start: 20111209, end: 20111209
  2. EPIRUBICIN (EPIRUBICIN) (EPIRUBICIN)? [Concomitant]

REACTIONS (1)
  - Thrombocytopenia [None]

NARRATIVE: CASE EVENT DATE: 20111210
